FAERS Safety Report 5559134-0 (Version None)
Quarter: 2007Q4

REPORT INFORMATION
  Report Type: 
  Country: None (occurrence: None)
  Receive Date: 20071214
  Receipt Date: 20070920
  Transmission Date: 20080405
  Serious: No
  Sender: FDA-Public Use
  Company Number: US-ABBOTT-07P-163-0417757-00

PATIENT
  Sex: Female
  Weight: 54.48 kg

DRUGS (4)
  1. HUMIRA [Suspect]
     Indication: CROHN'S DISEASE
     Route: 058
     Dates: start: 20070803
  2. LOW DOSE FLAGYL [Concomitant]
     Indication: DRUG USE FOR UNKNOWN INDICATION
  3. MESALAMINE [Concomitant]
     Indication: CROHN'S DISEASE
     Route: 048
     Dates: start: 20020101
  4. METRONIDAZOLE HCL [Concomitant]
     Indication: CROHN'S DISEASE
     Route: 048
     Dates: start: 20020101

REACTIONS (4)
  - COUGH [None]
  - FATIGUE [None]
  - PNEUMONIA [None]
  - PYREXIA [None]
